FAERS Safety Report 5840505-X (Version None)
Quarter: 2008Q3

REPORT INFORMATION
  Report Type: 
  Country: None (occurrence: None)
  Receive Date: 20080807
  Receipt Date: 20080807
  Transmission Date: 20090109
  Serious: Yes (Life-Threatening, Hospitalization, Disabling)
  Sender: FDA-Public Use
  Company Number: None

PATIENT
  Sex: Female
  Weight: 95 kg

DRUGS (9)
  1. ABCIXIMAB 10MG -5 ML VIAL- 2MG/ML- [Suspect]
     Indication: ACUTE MYOCARDIAL INFARCTION
     Dosage: 25 MG ONE TIME IV BOLUS, ONE MINUTE
     Route: 040
     Dates: start: 20080727, end: 20080727
  2. ABCIXIMAB 10MG -5 ML VIAL- 2MG/ML [Suspect]
     Indication: ACUTE MYOCARDIAL INFARCTION
     Dosage: 9MG/250ML AT 17ML/HR - 12 HOURS IV DRIP
     Route: 041
     Dates: start: 20080727, end: 20080728
  3. ASPIRIN [Concomitant]
  4. PLAVIX [Concomitant]
  5. HEPARIN [Concomitant]
  6. LIDOCAINE [Concomitant]
  7. DOPAMINE DRIP [Concomitant]
  8. TITRATABLE DRIP [Concomitant]
  9. ZOFRAN [Concomitant]

REACTIONS (1)
  - THROMBOCYTOPENIA [None]
